FAERS Safety Report 18959006 (Version 3)
Quarter: 2021Q1

REPORT INFORMATION
  Report Type: Spontaneous
  Country: US (occurrence: US)
  Receive Date: 20210302
  Receipt Date: 20210325
  Transmission Date: 20210420
  Serious: No
  Sender: FDA-Public Use
  Company Number: US-SA-2021SA067498

PATIENT
  Age: 30 Year
  Sex: Female

DRUGS (2)
  1. DUPIXENT [Suspect]
     Active Substance: DUPILUMAB
     Indication: DERMATITIS ATOPIC
     Dosage: 600 MG, 1X
     Route: 058
     Dates: start: 20210221, end: 20210221
  2. DUPIXENT [Suspect]
     Active Substance: DUPILUMAB
     Dosage: 300 MG, QOW
     Route: 058
     Dates: start: 20210302

REACTIONS (15)
  - Pain in extremity [Unknown]
  - Product use issue [Unknown]
  - Incorrect dose administered by device [Unknown]
  - Pain of skin [Not Recovered/Not Resolved]
  - Injection site erythema [Recovered/Resolved]
  - Pruritus [Not Recovered/Not Resolved]
  - Dry skin [Not Recovered/Not Resolved]
  - Middle insomnia [Not Recovered/Not Resolved]
  - Injection site pain [Unknown]
  - Skin fissures [Not Recovered/Not Resolved]
  - Device issue [Unknown]
  - Sleep disorder [Not Recovered/Not Resolved]
  - Injection site swelling [Recovered/Resolved]
  - Injection site pain [Unknown]
  - Injection site discomfort [Unknown]

NARRATIVE: CASE EVENT DATE: 20210222
